FAERS Safety Report 17413890 (Version 1)
Quarter: 2020Q1

REPORT INFORMATION
  Report Type: Spontaneous
  Country: US (occurrence: US)
  Receive Date: 20200130
  Receipt Date: 20200130
  Transmission Date: 20200409
  Serious: Yes (Hospitalization)
  Sender: FDA-Public Use
  Company Number: None

PATIENT
  Age: 59 Year
  Sex: Male

DRUGS (2)
  1. QUETIAPINE (QUETIAPINE FUMARATE 100MG TAB ) [Suspect]
     Active Substance: QUETIAPINE FUMARATE
     Indication: SLEEP DISORDER
     Route: 048
     Dates: start: 20150601
  2. DIAZEPAM (DIAZEPAM 10MG TAB) [Suspect]
     Active Substance: DIAZEPAM
     Indication: ANXIETY
     Route: 048
     Dates: start: 19970101

REACTIONS (2)
  - Sinusitis [None]
  - Pneumonia [None]

NARRATIVE: CASE EVENT DATE: 20191120
